FAERS Safety Report 9136643 (Version 1)
Quarter: 2013Q1

REPORT INFORMATION
  Report Type: Spontaneous
  Country: US (occurrence: US)
  Receive Date: 20130304
  Receipt Date: 20130304
  Transmission Date: 20140127
  Serious: No
  Sender: FDA-Public Use
  Company Number: US-ABBOTT-12P-163-1011965-00

PATIENT
  Age: 36 Year
  Sex: Male
  Weight: 174.79 kg

DRUGS (2)
  1. ANDROGEL [Suspect]
     Indication: BLOOD TESTOSTERONE DECREASED
     Dosage: 4 PUMPS
     Dates: start: 201205, end: 20121030
  2. LEVOTHYROXINE [Concomitant]
     Indication: HYPOTHYROIDISM

REACTIONS (3)
  - Mood swings [Not Recovered/Not Resolved]
  - Malaise [Not Recovered/Not Resolved]
  - Testicular pain [Not Recovered/Not Resolved]
